FAERS Safety Report 25539030 (Version 1)
Quarter: 2025Q3

REPORT INFORMATION
  Report Type: Spontaneous
  Country: AR (occurrence: AR)
  Receive Date: 20250710
  Receipt Date: 20250710
  Transmission Date: 20251020
  Serious: Yes (Hospitalization)
  Sender: SANDOZ
  Company Number: AR-MLMSERVICE-20250702-PI560540-00218-5

PATIENT
  Age: 33 Year
  Sex: Male

DRUGS (4)
  1. METHOTREXATE [Suspect]
     Active Substance: METHOTREXATE
     Indication: Dermatomyositis
     Dosage: 15 MG, QW
     Route: 065
  2. MYCOPHENOLATE MOFETIL [Suspect]
     Active Substance: MYCOPHENOLATE MOFETIL
     Indication: Dermatomyositis
     Dosage: 2 G, QD
     Route: 065
  3. METHYLPREDNISOLONE [Suspect]
     Active Substance: METHYLPREDNISOLONE
     Indication: Dermatomyositis
     Dosage: 20 MG, QD
     Route: 048
  4. METHYLPREDNISOLONE [Suspect]
     Active Substance: METHYLPREDNISOLONE
     Dosage: 500 MG, QD, THREE INTRAVENOUS PULSES OF 500 MG OF  METHYLPREDNISOLONE FOR 3 CONSECUTIVE DAYS
     Route: 042

REACTIONS (4)
  - Extrapulmonary tuberculosis [Recovering/Resolving]
  - Hypercalcaemia [Recovering/Resolving]
  - Nephropathy toxic [Recovering/Resolving]
  - Tuberculosis [Recovering/Resolving]
